FAERS Safety Report 21894413 (Version 1)
Quarter: 2023Q1

REPORT INFORMATION
  Report Type: Report from Study
  Country: US (occurrence: US)
  Receive Date: 20230121
  Receipt Date: 20230121
  Transmission Date: 20230417
  Serious: Yes (Other)
  Sender: FDA-Public Use
  Company Number: US-AUROBINDO-AUR-APL-2023-001810

PATIENT
  Age: 70 Year
  Sex: Female

DRUGS (1)
  1. POLYETHYLENE GLYCOL [Suspect]
     Active Substance: POLYETHYLENE GLYCOL
     Indication: Procedural intestinal perforation
     Dosage: UNK
     Route: 048

REACTIONS (2)
  - Crystal nephropathy [Recovering/Resolving]
  - Chronic kidney disease [Recovering/Resolving]
